FAERS Safety Report 13091590 (Version 1)
Quarter: 2017Q1

REPORT INFORMATION
  Report Type: Report from Study
  Country: US (occurrence: US)
  Receive Date: 20170106
  Receipt Date: 20170106
  Transmission Date: 20170428
  Serious: Yes (Other)
  Sender: FDA-Public Use
  Company Number: PHEH2017US000559

PATIENT
  Sex: Male

DRUGS (3)
  1. NEORAL [Suspect]
     Active Substance: CYCLOSPORINE
     Indication: TRANSPLANT
     Route: 065
  2. CELLCEPT [Suspect]
     Active Substance: MYCOPHENOLATE MOFETIL\MYCOPHENOLATE MOFETIL HYDROCHLORIDE
     Dosage: 250 MG (TWO IN THE MORNING AND TWO IN THE EVENING), UNK
     Route: 065
  3. NEORAL [Suspect]
     Active Substance: CYCLOSPORINE
     Dosage: 25 MG (TAKING TWO IN THE MORNING AND ONE IN THE EVENING), UNK
     Route: 065

REACTIONS (3)
  - Malignant melanoma [Unknown]
  - Osteoporosis [Unknown]
  - Skin disorder [Unknown]
